FAERS Safety Report 9173601 (Version 1)
Quarter: 2013Q1

REPORT INFORMATION
  Report Type: Report from Study
  Country: US (occurrence: US)
  Receive Date: 20130320
  Receipt Date: 20130320
  Transmission Date: 20140127
  Serious: Yes (Other)
  Sender: FDA-Public Use
  Company Number: US-JNJFOC-20110906167

PATIENT
  Age: 60 Year
  Sex: Female
  Weight: 89.4 kg

DRUGS (17)
  1. GOLIMUMAB [Suspect]
     Indication: RHEUMATOID ARTHRITIS
     Route: 042
     Dates: start: 20091223, end: 20110815
  2. GOLIMUMAB [Suspect]
     Indication: RHEUMATOID ARTHRITIS
     Route: 042
     Dates: end: 20111122
  3. POTASSIUM SUPPLEMENT [Concomitant]
     Route: 048
  4. LASIX [Concomitant]
     Route: 048
     Dates: start: 20110304
  5. CENTRUM MULTIVITAMINS [Concomitant]
     Route: 048
     Dates: start: 1999
  6. TRAMADOL [Concomitant]
     Indication: RHEUMATOID ARTHRITIS
     Route: 048
     Dates: start: 20090327
  7. VITAMIN C [Concomitant]
     Route: 048
     Dates: start: 1999
  8. ASPIRIN [Concomitant]
     Route: 048
     Dates: start: 1999
  9. FISH OIL [Concomitant]
     Route: 048
     Dates: start: 1999
  10. TUMS [Concomitant]
     Indication: DYSPEPSIA
     Route: 048
     Dates: start: 1999
  11. FOLIC ACID [Concomitant]
     Indication: RHEUMATOID ARTHRITIS
     Route: 048
     Dates: start: 20091223
  12. FLUTICASONE [Concomitant]
     Indication: CHRONIC OBSTRUCTIVE PULMONARY DISEASE
     Route: 055
     Dates: start: 200909
  13. SALMETEROL [Concomitant]
     Indication: CHRONIC OBSTRUCTIVE PULMONARY DISEASE
     Route: 055
     Dates: start: 200909
  14. PREDNISONE [Concomitant]
     Indication: RHEUMATOID ARTHRITIS
     Route: 048
     Dates: start: 20091130
  15. METHOTREXATE [Concomitant]
     Indication: RHEUMATOID ARTHRITIS
     Route: 048
     Dates: start: 20090424
  16. TRIAMTERENE [Concomitant]
     Indication: HYPERTENSION
     Dates: start: 2007
  17. HCTZ [Concomitant]
     Indication: HYPERTENSION
     Route: 048
     Dates: start: 2007

REACTIONS (1)
  - Endophthalmitis [Recovered/Resolved with Sequelae]
